FAERS Safety Report 6800988-5 (Version None)
Quarter: 2010Q2

REPORT INFORMATION
  Report Type: 
  Country: None (occurrence: None)
  Receive Date: 20100629
  Receipt Date: 20100303
  Transmission Date: 20101027
  Serious: Yes (Other)
  Sender: FDA-Public Use
  Company Number: US-ASTRAZENECA-2009SE15657

PATIENT
  Age: 384 Month
  Sex: Male

DRUGS (10)
  1. SEROQUEL [Suspect]
     Dosage: 25 MG, 100 MG DISPENSED
     Route: 048
     Dates: start: 20050409
  2. INDERAL [Concomitant]
     Dosage: 120 MG,160 MG DISPENSED
     Dates: start: 20040322
  3. TRAZODONE HYDROCHLORIDE [Concomitant]
     Dosage: 100 MG, 150 MG DISPENSED
     Dates: start: 20040401
  4. MECLIZINE [Concomitant]
     Dates: start: 20050419
  5. GABAPENTIN [Concomitant]
     Dates: start: 20050409
  6. BUPROPION HCL [Concomitant]
     Dates: start: 20050419
  7. LAMICTAL [Concomitant]
     Dates: start: 20050419
  8. PREDNISONE [Concomitant]
     Dates: start: 20050917
  9. NABUMETONE [Concomitant]
     Dates: start: 20060201
  10. PRAVACHOL [Concomitant]
     Dates: start: 20060401

REACTIONS (3)
  - DIABETES MELLITUS [None]
  - HYPERGLYCAEMIA [None]
  - NEUROPATHY PERIPHERAL [None]
